FAERS Safety Report 6007240-9 (Version None)
Quarter: 2008Q4

REPORT INFORMATION
  Report Type: 
  Country: None (occurrence: None)
  Receive Date: 20081217
  Receipt Date: 20080207
  Transmission Date: 20090506
  Serious: No
  Sender: FDA-Public Use
  Company Number: US-ASTRAZENECA-2008UW02644

PATIENT
  Age: 46 Year
  Sex: Female
  Weight: 95.3 kg

DRUGS (4)
  1. CRESTOR [Suspect]
     Route: 048
  2. ESTRACE [Concomitant]
  3. TOPROL-XL [Concomitant]
  4. XYZAL [Concomitant]

REACTIONS (1)
  - GALLBLADDER PAIN [None]
